FAERS Safety Report 19745865 (Version 2)
Quarter: 2021Q3

REPORT INFORMATION
  Report Type: Report from Study
  Country: DE (occurrence: DE)
  Receive Date: 20210825
  Receipt Date: 20210831
  Transmission Date: 20211014
  Serious: Yes (Other)
  Sender: FDA-Public Use
  Company Number: DE-BAUSCH-BL-2021-028643

PATIENT
  Age: 44 Year
  Sex: Male
  Weight: 137 kg

DRUGS (4)
  1. SINGLE?DOSE PREFILLED SYRINGE [Suspect]
     Active Substance: DEVICE
     Indication: ARTHRITIS
  2. KYNTHEUM [Suspect]
     Active Substance: BRODALUMAB
     Indication: ARTHRITIS
  3. SINGLE?DOSE PREFILLED SYRINGE [Suspect]
     Active Substance: DEVICE
     Indication: PSORIASIS
     Route: 058
  4. KYNTHEUM [Suspect]
     Active Substance: BRODALUMAB
     Indication: PSORIASIS
     Route: 058
     Dates: start: 20210505

REACTIONS (3)
  - Psoriasis [Unknown]
  - Blood count abnormal [Not Recovered/Not Resolved]
  - Therapy interrupted [Unknown]

NARRATIVE: CASE EVENT DATE: 202107
